FAERS Safety Report 9868088 (Version 1)
Quarter: 2014Q1

REPORT INFORMATION
  Report Type: Spontaneous
  Country: US (occurrence: US)
  Receive Date: 20140204
  Receipt Date: 20140204
  Transmission Date: 20141002
  Serious: Yes (Hospitalization)
  Sender: FDA-Public Use
  Company Number: US-GLAXOSMITHKLINE-A1058533A

PATIENT
  Age: 51 Year
  Sex: Female

DRUGS (14)
  1. FLOVENT [Suspect]
     Indication: ASTHMA
     Dosage: 2PUFF UNKNOWN
     Route: 055
     Dates: start: 201310
  2. VENTOLIN [Suspect]
     Indication: ASTHMA
     Dosage: 2PUFF AS REQUIRED
     Route: 055
     Dates: start: 201310
  3. ALBUTEROL SULFATE [Suspect]
     Indication: PRODUCT USED FOR UNKNOWN INDICATION
     Route: 065
  4. METFORMIN [Suspect]
     Indication: PRODUCT USED FOR UNKNOWN INDICATION
     Route: 065
  5. GLIPIZIDE [Suspect]
     Indication: PRODUCT USED FOR UNKNOWN INDICATION
     Route: 065
  6. DIABETES MEDICATION [Suspect]
     Indication: PRODUCT USED FOR UNKNOWN INDICATION
     Route: 065
  7. DOCUSATE SODIUM [Concomitant]
  8. FLUTICASONE PROPIONATE [Concomitant]
  9. HYDROCHLOROTHIAZIDE [Concomitant]
  10. HYDROCODONE + ACETAMINOPHEN [Concomitant]
  11. LISINOPRIL [Concomitant]
  12. PANTOPRAZOLE SODIUM [Concomitant]
  13. SIMVASTATIN [Concomitant]
  14. TRAMADOL [Concomitant]

REACTIONS (6)
  - Asthma [Not Recovered/Not Resolved]
  - Dyspnoea exertional [Not Recovered/Not Resolved]
  - Wheezing [Not Recovered/Not Resolved]
  - Productive cough [Not Recovered/Not Resolved]
  - Thrombosis [Unknown]
  - Pancreatitis [Unknown]
